FAERS Safety Report 23318930 (Version 1)
Quarter: 2023Q4

REPORT INFORMATION
  Report Type: Spontaneous
  Country: US (occurrence: US)
  Receive Date: 20231220
  Receipt Date: 20231220
  Transmission Date: 20240110
  Serious: Yes (Hospitalization, Other)
  Sender: FDA-Public Use
  Company Number: US-GLAXOSMITHKLINE-US2023174507

PATIENT

DRUGS (1)
  1. BREO ELLIPTA [Suspect]
     Active Substance: FLUTICASONE FUROATE\VILANTEROL TRIFENATATE
     Indication: Asthma
     Dosage: 1 PUFF(S)100MCG-25MCG, QD
     Dates: start: 2018

REACTIONS (3)
  - Cardiac failure congestive [Recovering/Resolving]
  - Pulmonary mass [Not Recovered/Not Resolved]
  - Breast mass [Unknown]
